FAERS Safety Report 21230456 (Version 2)
Quarter: 2022Q3

REPORT INFORMATION
  Report Type: Report from Study
  Country: CA (occurrence: CA)
  Receive Date: 20220818
  Receipt Date: 20220902
  Transmission Date: 20221026
  Serious: Yes (Other)
  Sender: FDA-Public Use
  Company Number: CA-TEVA-2022-CA-2065444

PATIENT
  Age: 66 Year
  Sex: Male

DRUGS (3)
  1. PREDNISONE [Suspect]
     Active Substance: PREDNISONE
     Indication: Glomerulonephritis membranous
     Route: 065
  2. COSYNTROPIN HEXAACETATE [Suspect]
     Active Substance: COSYNTROPIN HEXAACETATE
     Indication: Glomerulonephritis membranous
     Route: 030
  3. MYCOPHENOLIC ACID [Suspect]
     Active Substance: MYCOPHENOLIC ACID
     Indication: Glomerulonephritis membranous
     Route: 065

REACTIONS (5)
  - Oedema [Unknown]
  - Dyspnoea [Unknown]
  - Hypokalaemia [Unknown]
  - Fatigue [Unknown]
  - Depressed mood [Unknown]
